FAERS Safety Report 9147209 (Version 1)
Quarter: 2013Q1

REPORT INFORMATION
  Report Type: Spontaneous
  Country: DE (occurrence: DE)
  Receive Date: 20130307
  Receipt Date: 20130307
  Transmission Date: 20140127
  Serious: Yes (Other)
  Sender: FDA-Public Use
  Company Number: DE-BANPHARM-20130975

PATIENT
  Age: 38 Year
  Sex: Male
  Weight: 97 kg

DRUGS (1)
  1. IBUPROFEN UNKNOWN PRODUCT [Suspect]
     Indication: BACK PAIN
     Dosage: 600 MG, QD,
     Route: 048

REACTIONS (2)
  - Alanine aminotransferase increased [Not Recovered/Not Resolved]
  - Gamma-glutamyltransferase increased [Not Recovered/Not Resolved]
